FAERS Safety Report 21102683 (Version 1)
Quarter: 2022Q3

REPORT INFORMATION
  Report Type: Spontaneous
  Country: US (occurrence: US)
  Receive Date: 20220719
  Receipt Date: 20220719
  Transmission Date: 20221027
  Serious: Yes (Other)
  Sender: FDA-Public Use
  Company Number: US-SUN PHARMACEUTICAL INDUSTRIES LTD-2022R1-343386

PATIENT
  Age: 46 Year
  Sex: Female

DRUGS (7)
  1. DOXYCYCLINE [Suspect]
     Active Substance: DOXYCYCLINE
     Indication: Product used for unknown indication
     Route: 065
  2. FINASTERIDE [Suspect]
     Active Substance: FINASTERIDE
     Indication: Lichen planopilaris
     Dosage: 5 MILLIGRAM, DAILY
     Route: 048
  3. MINOXIDIL [Suspect]
     Active Substance: MINOXIDIL
     Indication: Lichen planopilaris
     Dosage: 5 PERCENT, BID
     Route: 061
  4. CLOBETASOL [Suspect]
     Active Substance: CLOBETASOL
     Indication: Lichen planopilaris
     Dosage: 0.05 PERCENT, BID
     Route: 061
  5. KETOCONAZOLE [Suspect]
     Active Substance: KETOCONAZOLE
     Indication: Lichen planopilaris
     Dosage: UNK, TWICE WEEKLY
     Route: 065
  6. TRIAMCINOLONE ACETONIDE [Suspect]
     Active Substance: TRIAMCINOLONE ACETONIDE
     Indication: Lichen planopilaris
     Dosage: 10 MG/CC X 2 CC
     Route: 026
  7. DOXYCYCLINE HYCLATE [Concomitant]
     Active Substance: DOXYCYCLINE HYCLATE
     Indication: Lichen planopilaris
     Dosage: 50 MILLIGRAM, BID
     Route: 048

REACTIONS (2)
  - Therapy partial responder [Unknown]
  - Disease progression [Unknown]
